FAERS Safety Report 16949360 (Version 1)
Quarter: 2019Q4

REPORT INFORMATION
  Report Type: Spontaneous
  Country: US (occurrence: US)
  Receive Date: 20191023
  Receipt Date: 20191023
  Transmission Date: 20200122
  Serious: Yes (Other)
  Sender: FDA-Public Use
  Company Number: US-TEVA-2019-US-1124336

PATIENT
  Age: 40 Year
  Sex: Male

DRUGS (1)
  1. COPAXONE [Suspect]
     Active Substance: GLATIRAMER ACETATE
     Indication: MULTIPLE SCLEROSIS
     Dosage: STARTED ON 3RD WEEK, FORM STRENGTH: UNKNOWN
     Route: 065

REACTIONS (3)
  - Depressed mood [Unknown]
  - Multiple sclerosis relapse [Unknown]
  - Injection site pain [Unknown]
